FAERS Safety Report 25808610 (Version 1)
Quarter: 2025Q3

REPORT INFORMATION
  Report Type: Spontaneous
  Country: US (occurrence: None)
  Receive Date: 20250916
  Receipt Date: 20250916
  Transmission Date: 20251021
  Serious: Yes (Other)
  Sender: FDA-CTU
  Company Number: None

PATIENT
  Age: 46 Year
  Sex: Male

DRUGS (2)
  1. ZEPBOUND [Suspect]
     Active Substance: TIRZEPATIDE
     Indication: Obesity
  2. ZALEPLON [Concomitant]
     Active Substance: ZALEPLON

REACTIONS (2)
  - Therapeutic product effect decreased [None]
  - Therapeutic product effect delayed [None]

NARRATIVE: CASE EVENT DATE: 20250915
